FAERS Safety Report 15853461 (Version 2)
Quarter: 2019Q1

REPORT INFORMATION
  Report Type: Spontaneous
  Country: US (occurrence: US)
  Receive Date: 20190122
  Receipt Date: 20190308
  Transmission Date: 20190417
  Serious: No
  Sender: FDA-Public Use
  Company Number: US-SA-2019SA014348

PATIENT
  Age: 67 Year
  Sex: Male

DRUGS (1)
  1. TOUJEO [Suspect]
     Active Substance: INSULIN GLARGINE
     Indication: TYPE 1 DIABETES MELLITUS
     Dosage: 20 U, QD
     Route: 065
     Dates: start: 20190109

REACTIONS (7)
  - Heart rate abnormal [Unknown]
  - Glycosylated haemoglobin increased [Unknown]
  - Blood glucose fluctuation [Unknown]
  - Feeling abnormal [Unknown]
  - Respiration abnormal [Unknown]
  - Blood glucose increased [Unknown]
  - Drug ineffective [Unknown]
